FAERS Safety Report 9363929 (Version 1)
Quarter: 2013Q2

REPORT INFORMATION
  Report Type: Spontaneous
  Country: US (occurrence: US)
  Receive Date: 20130624
  Receipt Date: 20130624
  Transmission Date: 20140414
  Serious: Yes (Other)
  Sender: FDA-Public Use
  Company Number: US-RANBAXY-2013US-70561

PATIENT
  Age: 30 Year
  Sex: Male

DRUGS (5)
  1. MIDAZOLAM [Suspect]
     Indication: DRUG DETOXIFICATION
     Route: 065
  2. NALOXONE [Suspect]
     Indication: DRUG DETOXIFICATION
     Route: 065
  3. NALTREXONE [Suspect]
     Indication: DRUG DETOXIFICATION
     Route: 065
  4. PROPOFOL [Suspect]
     Indication: DRUG DETOXIFICATION
     Route: 065
  5. ISOFLURANE [Suspect]
     Indication: GENERAL ANAESTHESIA
     Route: 065

REACTIONS (3)
  - Toxicity to various agents [Unknown]
  - Mental disorder [Recovered/Resolved]
  - Respiratory distress [Unknown]
